FAERS Safety Report 5699266-X (Version None)
Quarter: 2008Q2

REPORT INFORMATION
  Report Type: 
  Country: None (occurrence: None)
  Receive Date: 20080407
  Receipt Date: 20080407
  Transmission Date: 20081010
  Serious: Yes (Other)
  Sender: FDA-Public Use
  Company Number: None

PATIENT
  Age: 56 Year
  Sex: Female
  Weight: 88.4514 kg

DRUGS (1)
  1. VYTORIN [Suspect]
     Indication: TYPE IIA HYPERLIPIDAEMIA
     Dosage: 20MG TO 80 MG TRIED 1 A DAY PO
     Route: 048
     Dates: start: 20060201, end: 20071009

REACTIONS (12)
  - ALOPECIA [None]
  - ARTHRALGIA [None]
  - BACK PAIN [None]
  - EAR PAIN [None]
  - JOINT SWELLING [None]
  - LOWER EXTREMITY MASS [None]
  - MUSCLE ATROPHY [None]
  - MUSCLE SPASMS [None]
  - NIGHT SWEATS [None]
  - PAIN IN EXTREMITY [None]
  - PAIN IN JAW [None]
  - SENSITIVITY OF TEETH [None]
